FAERS Safety Report 23432975 (Version 3)
Quarter: 2024Q2

REPORT INFORMATION
  Report Type: Report from Study
  Country: US (occurrence: US)
  Receive Date: 20240123
  Receipt Date: 20240522
  Transmission Date: 20240716
  Serious: No
  Sender: FDA-Public Use
  Company Number: US-SA-SAC20240119000164

PATIENT
  Age: 66 Year
  Sex: Female

DRUGS (1)
  1. DUPILUMAB [Suspect]
     Active Substance: DUPILUMAB
     Indication: Asthma
     Dosage: 300 MG, QOW
     Route: 058

REACTIONS (9)
  - Chest discomfort [Not Recovered/Not Resolved]
  - Bone pain [Unknown]
  - Joint stiffness [Unknown]
  - Influenza [Unknown]
  - Dyspnoea [Recovering/Resolving]
  - Nasopharyngitis [Unknown]
  - Vision blurred [Unknown]
  - Arthralgia [Unknown]
  - Dry eye [Unknown]

NARRATIVE: CASE EVENT DATE: 20240101
